FAERS Safety Report 6925450-0 (Version None)
Quarter: 2010Q3

REPORT INFORMATION
  Report Type: 
  Country: None (occurrence: None)
  Receive Date: 20100816
  Receipt Date: 20100804
  Transmission Date: 20110219
  Serious: Yes (Hospitalization, Disabling, Other)
  Sender: FDA-Public Use
  Company Number: CA-WYE-G06509710

PATIENT
  Age: 33 Year
  Sex: Male

DRUGS (3)
  1. EFFEXOR XR [Suspect]
     Dosage: UNKNOWN
     Route: 048
  2. EFFEXOR XR [Interacting]
     Route: 048
  3. CANNABIS [Interacting]
     Dosage: A CONSIDERABLE AMOUNT
     Dates: start: 20080101

REACTIONS (12)
  - ACTIVITIES OF DAILY LIVING IMPAIRED [None]
  - APHAGIA [None]
  - ASTHENIA [None]
  - BEDRIDDEN [None]
  - DEPRESSED MOOD [None]
  - DRUG INTERACTION [None]
  - FEELING ABNORMAL [None]
  - HYPERSOMNIA [None]
  - LOSS OF LIBIDO [None]
  - MENTAL DISORDER [None]
  - MOOD SWINGS [None]
  - SOMNOLENCE [None]
